FAERS Safety Report 24977052 (Version 3)
Quarter: 2025Q1

REPORT INFORMATION
  Report Type: Spontaneous
  Country: AR (occurrence: AR)
  Receive Date: 20250217
  Receipt Date: 20250321
  Transmission Date: 20250408
  Serious: No
  Sender: PFIZER
  Company Number: AR-PFIZER INC-202500033545

PATIENT
  Age: 9 Year
  Sex: Male

DRUGS (1)
  1. GENOTROPIN [Suspect]
     Active Substance: SOMATROPIN
     Indication: Foetal growth restriction
     Dosage: 1.4 MG, DAILY, 7 TIMES PER WEEK
     Dates: start: 20230925

REACTIONS (4)
  - Off label use [Unknown]
  - Device use issue [Unknown]
  - Device issue [Unknown]
  - Drug dose omission by device [Recovered/Resolved]

NARRATIVE: CASE EVENT DATE: 20230925
